FAERS Safety Report 11248841 (Version 1)
Quarter: 2015Q3

REPORT INFORMATION
  Report Type: Spontaneous
  Country: US (occurrence: US)
  Receive Date: 20150708
  Receipt Date: 20150708
  Transmission Date: 20151125
  Serious: No
  Sender: FDA-Public Use
  Company Number: US-ELI_LILLY_AND_COMPANY-US201008003455

PATIENT
  Sex: Female

DRUGS (3)
  1. GENOTROPIN [Concomitant]
     Active Substance: SOMATROPIN
  2. PROZAC [Suspect]
     Active Substance: FLUOXETINE HYDROCHLORIDE
     Indication: DEPRESSION
     Dosage: 20 MG, DAILY (1/D)
  3. ARMOUR THYROID [Concomitant]
     Active Substance: THYROID, PORCINE\THYROID, UNSPECIFIED

REACTIONS (7)
  - Weight increased [Unknown]
  - Head discomfort [Unknown]
  - Fear of weight gain [Unknown]
  - Fatigue [Unknown]
  - Drug ineffective [Unknown]
  - Depression [Unknown]
  - Emotional disorder [Unknown]
